FAERS Safety Report 8523597-9 (Version None)
Quarter: 2012Q3

REPORT INFORMATION
  Report Type: 
  Country: None (occurrence: None)
  Receive Date: 20120709
  Receipt Date: 20120629
  Transmission Date: 20120928
  Serious: Yes (Other)
  Sender: FDA-Public Use
  Company Number: AXC-2012-000281

PATIENT
  Age: 35 Year
  Sex: Female

DRUGS (7)
  1. PREDNISOLONE [Concomitant]
  2. OMEPRAZOLE [Concomitant]
  3. MAGMITT (MAGNESIUM OXIDE) [Concomitant]
  4. URSODIOL [Suspect]
     Indication: CHOLESTASIS
     Dosage: 600 MG, QD, ORAL
     Route: 048
     Dates: start: 20120405, end: 20120510
  5. URSODIOL [Suspect]
     Indication: CHOLESTASIS
     Dosage: 600 MG, QD, ORAL
     Route: 048
     Dates: start: 20120118, end: 20120209
  6. FERROUS CITRATE [Concomitant]
  7. PURSENNID (SENNOSIDE A+B CALCIUM) [Concomitant]

REACTIONS (4)
  - PLATELET COUNT ABNORMAL [None]
  - MATERNAL EXPOSURE DURING PREGNANCY [None]
  - APLASIA PURE RED CELL [None]
  - WHITE BLOOD CELL COUNT ABNORMAL [None]
